FAERS Safety Report 5278881-1 (Version None)
Quarter: 2007Q1

REPORT INFORMATION
  Report Type: 
  Country: None (occurrence: None)
  Receive Date: 20070328
  Receipt Date: 20070308
  Transmission Date: 20070707
  Serious: Yes (Other)
  Sender: FDA-Public Use
  Company Number: NO-JNJFOC-20070306114

PATIENT
  Sex: Male

DRUGS (20)
  1. HALDOL [Suspect]
     Indication: SCHIZOAFFECTIVE DISORDER
     Route: 065
  2. RISPERDAL CONSTA [Suspect]
     Route: 065
  3. RISPERDAL CONSTA [Suspect]
     Route: 065
  4. RISPERDAL CONSTA [Suspect]
     Indication: SCHIZOAFFECTIVE DISORDER
     Route: 065
  5. ZOLOFT [Concomitant]
     Route: 065
  6. ZYPREXA [Concomitant]
     Route: 065
  7. ZYPREXA [Concomitant]
     Route: 065
  8. ZYPREXA [Concomitant]
     Route: 065
  9. ORFIRIL ENTERO [Concomitant]
     Dosage: NOT CONTINIOUSLY
     Route: 065
  10. ORFIRIL ENTERO [Concomitant]
     Route: 065
  11. CISORDINOL DEPOT [Concomitant]
     Route: 065
  12. CISORDINOL DEPOT [Concomitant]
     Route: 065
  13. ACINETON [Concomitant]
     Route: 065
  14. ACINETON [Concomitant]
     Route: 065
  15. ZELDOX [Concomitant]
     Route: 065
  16. ZELDOX [Concomitant]
     Route: 065
  17. LARGACTIL [Concomitant]
     Route: 065
  18. MEDROL [Concomitant]
     Route: 065
  19. TRILAFON [Concomitant]
     Route: 065
  20. TRILAFON [Concomitant]
     Route: 065

REACTIONS (10)
  - AMNESIA [None]
  - BRAIN NEOPLASM MALIGNANT [None]
  - CHILLS [None]
  - DENTAL EXAMINATION ABNORMAL [None]
  - HYPERTENSION [None]
  - HYPERTRICHOSIS [None]
  - LIVER INJURY [None]
  - MUSCULAR WEAKNESS [None]
  - URINARY INCONTINENCE [None]
  - WEIGHT INCREASED [None]
